FAERS Safety Report 9977278 (Version 1)
Quarter: 2014Q1

REPORT INFORMATION
  Report Type: Spontaneous
  Country: US (occurrence: US)
  Receive Date: 20140306
  Receipt Date: 20140306
  Transmission Date: 20141002
  Serious: No
  Sender: FDA-Public Use
  Company Number: US-ABBVIE-13P-163-1168656-00

PATIENT
  Age: 15 Year
  Sex: Male
  Weight: 81.72 kg

DRUGS (5)
  1. HUMIRA [Suspect]
     Indication: CROHN^S DISEASE
     Route: 058
     Dates: start: 201307, end: 201310
  2. HUMIRA [Suspect]
     Route: 058
     Dates: start: 201310, end: 201311
  3. LIALDA [Concomitant]
     Indication: CROHN^S DISEASE
  4. ZANTAC [Concomitant]
     Indication: CROHN^S DISEASE
  5. PROBIOTICS NOS [Concomitant]
     Indication: CROHN^S DISEASE

REACTIONS (5)
  - Drug specific antibody present [Not Recovered/Not Resolved]
  - Crohn^s disease [Not Recovered/Not Resolved]
  - Drug ineffective [Not Recovered/Not Resolved]
  - Off label use [Unknown]
  - Malaise [Not Recovered/Not Resolved]
